FAERS Safety Report 21889715 (Version 3)
Quarter: 2023Q1

REPORT INFORMATION
  Report Type: Spontaneous
  Country: US (occurrence: US)
  Receive Date: 20230120
  Receipt Date: 20230314
  Transmission Date: 20230417
  Serious: No
  Sender: FDA-Public Use
  Company Number: US-BRISTOL-MYERS SQUIBB COMPANY-2023-008512

PATIENT
  Age: 76 Year
  Sex: Female

DRUGS (3)
  1. ORENCIA [Suspect]
     Active Substance: ABATACEPT
     Indication: Rheumatoid arthritis
     Route: 058
     Dates: start: 202211
  2. ORENCIA [Suspect]
     Active Substance: ABATACEPT
     Route: 058
     Dates: start: 202302
  3. ORENCIA [Suspect]
     Active Substance: ABATACEPT
     Route: 058
     Dates: start: 20221027

REACTIONS (7)
  - Fatigue [Unknown]
  - Arthralgia [Unknown]
  - Peripheral swelling [Unknown]
  - Muscle spasms [Unknown]
  - Pain [Unknown]
  - Sinusitis [Recovering/Resolving]
  - Drug ineffective [Unknown]
